FAERS Safety Report 15546754 (Version 1)
Quarter: 2018Q4

REPORT INFORMATION
  Report Type: Spontaneous
  Country: US (occurrence: US)
  Receive Date: 20181024
  Receipt Date: 20181024
  Transmission Date: 20190205
  Serious: Yes (Other)
  Sender: FDA-Public Use
  Company Number: US-MYLANLABS-2018M1076704

PATIENT
  Age: 58 Year
  Sex: Male

DRUGS (11)
  1. NIACINAMIDE [Suspect]
     Active Substance: NIACINAMIDE
     Indication: LINEAR IGA DISEASE
     Route: 065
  2. MESALAZINE [Suspect]
     Active Substance: MESALAMINE
     Indication: PROCTITIS ULCERATIVE
     Route: 065
  3. DOXYCYCLINE. [Suspect]
     Active Substance: DOXYCYCLINE
     Indication: LINEAR IGA DISEASE
     Route: 065
  4. METHOTREXATE. [Concomitant]
     Active Substance: METHOTREXATE
     Indication: LINEAR IGA DISEASE
     Route: 065
  5. CLOBETASOL [Suspect]
     Active Substance: CLOBETASOL
     Indication: LINEAR IGA DISEASE
     Route: 061
  6. METHYLPREDNISOLONE. [Concomitant]
     Active Substance: METHYLPREDNISOLONE
     Indication: LINEAR IGA DISEASE
     Route: 042
  7. DAPSONE. [Suspect]
     Active Substance: DAPSONE
     Route: 065
  8. PREDNISONE. [Concomitant]
     Active Substance: PREDNISONE
     Indication: LINEAR IGA DISEASE
     Route: 065
  9. TRIAMCINOLONE [Suspect]
     Active Substance: TRIAMCINOLONE
     Indication: LINEAR IGA DISEASE
     Route: 065
  10. HYDROXYZINE [Suspect]
     Active Substance: HYDROXYZINE HYDROCHLORIDE
     Indication: LINEAR IGA DISEASE
     Route: 065
  11. DAPSONE. [Suspect]
     Active Substance: DAPSONE
     Indication: LINEAR IGA DISEASE
     Dosage: INITIAL DOSAGE NOT STATED. LATER, THE DOSAGE WAS TITRATED TO 150MG PER DAY
     Route: 065

REACTIONS (2)
  - Treatment failure [Unknown]
  - Dermatitis acneiform [Unknown]
